FAERS Safety Report 21290287 (Version 1)
Quarter: 2022Q3

REPORT INFORMATION
  Report Type: Report from Study
  Country: US (occurrence: US)
  Receive Date: 20220902
  Receipt Date: 20220902
  Transmission Date: 20221027
  Serious: Yes (Other)
  Sender: FDA-Public Use
  Company Number: US-GILEAD-2022-0590161

PATIENT
  Age: 23 Year
  Sex: Male

DRUGS (27)
  1. AZTREONAM LYSINE [Suspect]
     Active Substance: AZTREONAM LYSINE
     Indication: Pseudomonas infection
     Dosage: 75 MG, TID, 28 DAYS ON AND 28 DAYS OFF
     Route: 055
  2. ACETYLCYSTEINE [Concomitant]
     Active Substance: ACETYLCYSTEINE
  3. ALBUTEROL [Concomitant]
     Active Substance: ALBUTEROL
  4. BISACODYL [Concomitant]
     Active Substance: BISACODYL
  5. BROMOCRIPTINE MESYLATE [Concomitant]
     Active Substance: BROMOCRIPTINE MESYLATE
  6. COLACE [Concomitant]
     Active Substance: DOCUSATE SODIUM
  7. DIAZEPAM [Concomitant]
     Active Substance: DIAZEPAM
  8. FENOFIBRATE [Concomitant]
     Active Substance: FENOFIBRATE
  9. FISH OIL [Concomitant]
     Active Substance: FISH OIL
  10. FLONASE [Concomitant]
     Active Substance: FLUTICASONE PROPIONATE
  11. GABAPENTIN [Concomitant]
     Active Substance: GABAPENTIN
  12. HUMULIN R [Concomitant]
     Active Substance: INSULIN HUMAN
  13. HYDROCORTISONE [Concomitant]
     Active Substance: HYDROCORTISONE
  14. LANTUS [Concomitant]
     Active Substance: INSULIN GLARGINE
  15. LASIX [Concomitant]
     Active Substance: FUROSEMIDE
  16. LEVOTHYROXINE [Concomitant]
     Active Substance: LEVOTHYROXINE
  17. LINZESS [Concomitant]
     Active Substance: LINACLOTIDE
  18. CLARITHROMYCIN [Concomitant]
     Active Substance: CLARITHROMYCIN
  19. MELATONIN [Concomitant]
     Active Substance: MELATONIN
  20. MIDODRINE [Concomitant]
     Active Substance: MIDODRINE
  21. NEXIUM I.V. [Concomitant]
     Active Substance: ESOMEPRAZOLE SODIUM
  22. OXYBUTYNIN [Concomitant]
     Active Substance: OXYBUTYNIN
  23. POTASSIUM [Concomitant]
     Active Substance: POTASSIUM
  24. PULMICORT TURBUHALER [Concomitant]
     Active Substance: BUDESONIDE
  25. SYNTHROID [Concomitant]
     Active Substance: LEVOTHYROXINE SODIUM
  26. TOBRAMYCIN [Concomitant]
     Active Substance: TOBRAMYCIN
  27. ZYRTEC [Concomitant]
     Active Substance: CETIRIZINE HYDROCHLORIDE

REACTIONS (2)
  - Tracheostomy [Not Recovered/Not Resolved]
  - Off label use [Not Recovered/Not Resolved]
